FAERS Safety Report 21199293 (Version 2)
Quarter: 2022Q3

REPORT INFORMATION
  Report Type: Spontaneous
  Country: US (occurrence: US)
  Receive Date: 20220811
  Receipt Date: 20220818
  Transmission Date: 20221027
  Serious: No
  Sender: FDA-Public Use
  Company Number: US-SA-SAC20220809001879

PATIENT
  Age: 29 Year
  Sex: Female
  Weight: 85.093 kg

DRUGS (14)
  1. DUPIXENT [Suspect]
     Active Substance: DUPILUMAB
     Indication: Dermatitis atopic
     Dosage: 300 MG, QOW
     Route: 058
  2. LORAZEPAM [Concomitant]
     Active Substance: LORAZEPAM
  3. BETAMETHASONE [Concomitant]
     Active Substance: BETAMETHASONE
  4. EPINEPHRINE [Concomitant]
     Active Substance: EPINEPHRINE
  5. HYDROCORTISONE [Concomitant]
     Active Substance: HYDROCORTISONE
  6. AZELASTINE;MOMETASONE [Concomitant]
  7. MIRENA [Concomitant]
     Active Substance: LEVONORGESTREL
  8. FLONASE ALLERGY RELIEF [Concomitant]
     Active Substance: FLUTICASONE PROPIONATE
  9. ABILIFY MAINTENA [Concomitant]
     Active Substance: ARIPIPRAZOLE
  10. ZYRTEC [Concomitant]
     Active Substance: CETIRIZINE HYDROCHLORIDE
  11. LEXAPRO [Concomitant]
     Active Substance: ESCITALOPRAM OXALATE
  12. VITAMINS [Concomitant]
     Active Substance: VITAMINS
  13. BETAMETHASONE DIPROPIONATE AUGMENTED [Concomitant]
     Active Substance: BETAMETHASONE DIPROPIONATE
  14. AZELASTINE HYDROCHLORIDE\FLUTICASONE PROPIONATE [Concomitant]
     Active Substance: AZELASTINE HYDROCHLORIDE\FLUTICASONE PROPIONATE

REACTIONS (8)
  - COVID-19 [Recovering/Resolving]
  - Condition aggravated [Recovering/Resolving]
  - Oropharyngeal pain [Recovered/Resolved]
  - Abdominal pain upper [Recovered/Resolved]
  - Chills [Recovered/Resolved]
  - Cough [Recovering/Resolving]
  - Headache [Recovering/Resolving]
  - Dermatitis atopic [Unknown]

NARRATIVE: CASE EVENT DATE: 20220803
